FAERS Safety Report 4979465-2 (Version None)
Quarter: 2006Q2

REPORT INFORMATION
  Report Type: 
  Country: None (occurrence: None)
  Receive Date: 20060421
  Receipt Date: 20020730
  Transmission Date: 20061013
  Serious: Yes (Hospitalization, Disabling)
  Sender: FDA-Public Use
  Company Number: US-MERCK-0208USA00628

PATIENT
  Age: 51 Year
  Sex: Male
  Weight: 90 kg

DRUGS (16)
  1. VIOXX [Suspect]
     Indication: ARTHRITIS
     Route: 048
     Dates: start: 20020108, end: 20040109
  2. VIOXX [Suspect]
     Route: 065
     Dates: start: 20021203
  3. ASPIRIN [Concomitant]
     Route: 065
  4. ATENOLOL [Concomitant]
     Route: 065
     Dates: end: 20021201
  5. ATENOLOL [Concomitant]
     Route: 065
     Dates: end: 20021201
  6. ANTIMICROBIAL (UNSPECIFIED) [Concomitant]
     Indication: SINUSITIS
     Route: 065
  7. MAXZIDE [Concomitant]
     Route: 065
  8. TRILEPTAL [Concomitant]
     Route: 065
  9. TRILEPTAL [Concomitant]
     Route: 065
  10. RISPERDAL [Concomitant]
     Route: 065
  11. RISPERDAL [Concomitant]
     Route: 065
  12. EFFEXOR [Concomitant]
     Route: 065
  13. POTASSIUM (UNSPECIFIED) [Concomitant]
     Route: 065
  14. NEURONTIN [Concomitant]
     Route: 065
  15. AMBIEN [Concomitant]
     Route: 065
  16. IRON (UNSPECIFIED) [Concomitant]
     Route: 065

REACTIONS (21)
  - ASTHENIA [None]
  - BACK INJURY [None]
  - CARDIAC DISORDER [None]
  - CARDIAC VALVE DISEASE [None]
  - CARDIOMYOPATHY [None]
  - CARDIOVASCULAR DISORDER [None]
  - CHEST PAIN [None]
  - DIZZINESS [None]
  - DYSPHAGIA [None]
  - DYSPNOEA [None]
  - EJECTION FRACTION DECREASED [None]
  - GASTRIC DISORDER [None]
  - MYOCARDIAL INFARCTION [None]
  - ORTHOSTATIC HYPOTENSION [None]
  - OVERDOSE [None]
  - PALPITATIONS [None]
  - STOMACH DISCOMFORT [None]
  - SYNCOPE [None]
  - VENTRICULAR EXTRASYSTOLES [None]
  - VENTRICULAR FAILURE [None]
  - VENTRICULAR HYPERTROPHY [None]
